FAERS Safety Report 5369509-0 (Version None)
Quarter: 2007Q2

REPORT INFORMATION
  Report Type: 
  Country: None (occurrence: None)
  Receive Date: 20070625
  Receipt Date: 20070620
  Transmission Date: 20071010
  Serious: Yes (Other)
  Sender: FDA-Public Use
  Company Number: A0658932A

PATIENT
  Age: 61 Year
  Sex: Female

DRUGS (6)
  1. AVANDIA [Suspect]
     Dosage: 4MG PER DAY
     Route: 048
     Dates: start: 20030401
  2. METFORMIN HCL [Concomitant]
  3. GEMFIBROZIL [Concomitant]
  4. CRESTOR [Concomitant]
  5. ZETIA [Concomitant]
  6. EVISTA [Concomitant]

REACTIONS (5)
  - FAT TISSUE INCREASED [None]
  - FOOT FRACTURE [None]
  - GAIT DISTURBANCE [None]
  - PAIN [None]
  - WEIGHT INCREASED [None]
